FAERS Safety Report 9690861 (Version 3)
Quarter: 2013Q4

REPORT INFORMATION
  Report Type: Spontaneous
  Country: AR (occurrence: AR)
  Receive Date: 20131115
  Receipt Date: 20131202
  Transmission Date: 20140711
  Serious: Yes (Hospitalization)
  Sender: FDA-Public Use
  Company Number: AR-ABBVIE-13P-007-1169770-00

PATIENT
  Age: 10 Year
  Sex: Male
  Weight: 35 kg

DRUGS (3)
  1. DIVALPROEX SODIUM [Suspect]
     Indication: INAPPROPRIATE AFFECT
     Dosage: DAILY DOSE: 1250MG; DOSE DIVIDED IN THREE INTAKES
     Route: 048
     Dates: end: 20131027
  2. VALPROATE SODIUM [Suspect]
     Indication: PRODUCT USED FOR UNKNOWN INDICATION
     Dosage: 35MG/KG/DAY
     Dates: start: 20131028
  3. CLONAZEPAN [Concomitant]
     Indication: AGGRESSION
     Dosage: 0.04 MG/KG/DAY
     Route: 048

REACTIONS (5)
  - Atelectasis [Recovered/Resolved]
  - Encephalitis [Unknown]
  - Pneumonia [Recovered/Resolved]
  - Bronchial obstruction [Recovered/Resolved]
  - Somnolence [Unknown]
